FAERS Safety Report 13084444 (Version 1)
Quarter: 2017Q1

REPORT INFORMATION
  Report Type: Spontaneous
  Country: US (occurrence: US)
  Receive Date: 20170103
  Receipt Date: 20170103
  Transmission Date: 20170428
  Serious: Yes (Hospitalization)
  Sender: FDA-Public Use
  Company Number: None

PATIENT
  Age: 74 Year
  Sex: Female
  Weight: 36.2 kg

DRUGS (11)
  1. IPRATROPIUM/ALBUTEROL [Concomitant]
     Active Substance: ALBUTEROL\IPRATROPIUM
  2. BEVACIZUMAB (50 MG/M2/PER DAY) [Suspect]
     Active Substance: BEVACIZUMAB
     Dosage: 64 MG (DOSE LEVEL 1) DAYS 1, 8, 15 IV
     Route: 042
     Dates: start: 20161201
  3. COMPAZINE [Concomitant]
     Active Substance: PROCHLORPERAZINE MALEATE
  4. ALBUTEROL. [Concomitant]
     Active Substance: ALBUTEROL
  5. CRANBERRY. [Concomitant]
     Active Substance: CRANBERRY
  6. ABRAXANE [Suspect]
     Active Substance: PACLITAXEL
     Indication: FALLOPIAN TUBE CANCER METASTATIC
     Dosage: 160 MG (DOSE LEVEL 1) DAYS 1, 8, 15 IV
     Route: 042
     Dates: start: 20160822
  7. BECLOMETHASONE [Concomitant]
     Active Substance: BECLOMETHASONE
  8. LORAZEPAM. [Concomitant]
     Active Substance: LORAZEPAM
  9. TYLENOL [Concomitant]
     Active Substance: ACETAMINOPHEN
  10. METOPROLOL. [Concomitant]
     Active Substance: METOPROLOL
  11. OXYBUTYNIN [Concomitant]
     Active Substance: OXYBUTYNIN

REACTIONS (7)
  - Productive cough [None]
  - Fatigue [None]
  - Pneumonia [None]
  - Decreased appetite [None]
  - Chest pain [None]
  - Asthenia [None]
  - Weight decreased [None]

NARRATIVE: CASE EVENT DATE: 20170102
